FAERS Safety Report 9397485 (Version 3)
Quarter: 2013Q3

REPORT INFORMATION
  Report Type: Spontaneous
  Country: ES (occurrence: ES)
  Receive Date: 20130712
  Receipt Date: 20130730
  Transmission Date: 20140515
  Serious: Yes (Other)
  Sender: FDA-Public Use
  Company Number: ES-JNJFOC-20130705835

PATIENT
  Age: 2 Year
  Sex: Female

DRUGS (5)
  1. DOXORUBICIN [Suspect]
     Indication: NEPHROBLASTOMA
     Route: 042
  2. FARMIBLASTINA [Suspect]
     Indication: NEPHROBLASTOMA
     Route: 065
  3. ETOPOSIDE [Suspect]
     Indication: NEPHROBLASTOMA
     Route: 065
  4. CARBOPLATIN [Suspect]
     Indication: NEPHROBLASTOMA
     Route: 065
  5. CYCLOPHOSPHAMIDE [Suspect]
     Indication: NEPHROBLASTOMA
     Route: 065

REACTIONS (6)
  - Metastases to liver [Unknown]
  - Metastases to lung [Unknown]
  - Staphylococcal bacteraemia [Unknown]
  - Nephroblastoma [Unknown]
  - Neutropenia [Unknown]
  - Off label use [Unknown]
